FAERS Safety Report 5891076-3 (Version None)
Quarter: 2008Q3

REPORT INFORMATION
  Report Type: 
  Country: None (occurrence: None)
  Receive Date: 20080922
  Receipt Date: 20080917
  Transmission Date: 20090109
  Serious: Yes (Hospitalization)
  Sender: FDA-Public Use
  Company Number: CN-ABBOTT-08P-035-0473289-00

PATIENT

DRUGS (1)
  1. LIPANTHYL [Suspect]
     Indication: HYPERTRIGLYCERIDAEMIA
     Route: 048

REACTIONS (3)
  - PARALYSIS FLACCID [None]
  - RHABDOMYOLYSIS [None]
  - URINE COLOUR ABNORMAL [None]
